FAERS Safety Report 10483030 (Version 2)
Quarter: 2014Q4

REPORT INFORMATION
  Report Type: Spontaneous
  Country: JP (occurrence: JP)
  Receive Date: 20140930
  Receipt Date: 20141120
  Transmission Date: 20150528
  Serious: Yes (Death, Hospitalization)
  Sender: FDA-Public Use
  Company Number: JP-ROCHE-1467563

PATIENT
  Age: 87 Year
  Sex: Male
  Weight: 63 kg

DRUGS (17)
  1. ELPLAT [Suspect]
     Active Substance: OXALIPLATIN
     Route: 041
     Dates: start: 20140718, end: 20140723
  2. ELPLAT [Suspect]
     Active Substance: OXALIPLATIN
     Route: 041
     Dates: start: 20140516
  3. AVASTIN [Suspect]
     Active Substance: BEVACIZUMAB
     Route: 041
     Dates: start: 20140516, end: 20140529
  4. AVASTIN [Suspect]
     Active Substance: BEVACIZUMAB
     Indication: COLON CANCER
     Route: 041
     Dates: start: 20140425
  5. ELPLAT [Suspect]
     Active Substance: OXALIPLATIN
     Route: 041
     Dates: start: 20140627
  6. TS-1 [Suspect]
     Active Substance: GIMERACIL\OTERACIL\TEGAFUR
     Dosage: MOST RECENT DOSE ON 08/MAY/2014
     Route: 048
     Dates: start: 20140718, end: 20140723
  7. AVASTIN [Suspect]
     Active Substance: BEVACIZUMAB
     Route: 041
     Dates: start: 20140718, end: 20140723
  8. TS-1 [Suspect]
     Active Substance: GIMERACIL\OTERACIL\TEGAFUR
     Dosage: MOST RECENT DOSE ON 08/MAY/2014
     Route: 048
     Dates: start: 20140627, end: 20140710
  9. ALOXI [Concomitant]
     Active Substance: PALONOSETRON HYDROCHLORIDE
     Route: 065
  10. AVASTIN [Suspect]
     Active Substance: BEVACIZUMAB
     Route: 041
     Dates: start: 20140606, end: 20140619
  11. TS-1 [Suspect]
     Active Substance: GIMERACIL\OTERACIL\TEGAFUR
     Dosage: MOST RECENT DOSE ON 08/MAY/2014
     Route: 048
  12. CLARITH [Suspect]
     Active Substance: CLARITHROMYCIN
     Indication: PRODUCT USED FOR UNKNOWN INDICATION
     Dosage: DOSAGE IS UNCERTAIN.
     Route: 065
     Dates: start: 20140731, end: 20140803
  13. DECADRON [Concomitant]
     Active Substance: DEXAMETHASONE
     Route: 065
  14. AVASTIN [Suspect]
     Active Substance: BEVACIZUMAB
     Route: 041
     Dates: start: 20140627
  15. TS-1 [Suspect]
     Active Substance: GIMERACIL\OTERACIL\TEGAFUR
     Indication: COLON CANCER
     Dosage: MOST RECENT DOSE ON 08/MAY/2014
     Route: 048
     Dates: start: 20140425
  16. ELPLAT [Suspect]
     Active Substance: OXALIPLATIN
     Indication: COLON CANCER
     Route: 041
     Dates: start: 20140425
  17. ELPLAT [Suspect]
     Active Substance: OXALIPLATIN
     Route: 041
     Dates: start: 20140606

REACTIONS (9)
  - Disseminated intravascular coagulation [Fatal]
  - Decreased appetite [Unknown]
  - Lipoma [Unknown]
  - Multi-organ failure [Fatal]
  - Interstitial lung disease [Fatal]
  - Vascular calcification [Unknown]
  - Adenoma benign [Unknown]
  - Lymphadenopathy [Unknown]
  - Thrombosis [Unknown]

NARRATIVE: CASE EVENT DATE: 20140718
